FAERS Safety Report 4968269-2 (Version None)
Quarter: 2006Q1

REPORT INFORMATION
  Report Type: 
  Country: None (occurrence: None)
  Receive Date: 20060201
  Receipt Date: 20051228
  Transmission Date: 20060701
  Serious: No
  Sender: FDA-Public Use
  Company Number: 2005PV006335

PATIENT
  Age: 60 Year
  Sex: Female
  Weight: 106.1417 kg

DRUGS (3)
  1. BYETTA [Suspect]
     Indication: DIABETES MELLITUS NON-INSULIN-DEPENDENT
     Dosage: SEE IMAGE
     Route: 058
     Dates: start: 20051005, end: 20051104
  2. BYETTA [Suspect]
     Indication: DIABETES MELLITUS NON-INSULIN-DEPENDENT
     Dosage: SEE IMAGE
     Route: 058
     Dates: start: 20051105
  3. GLUCOPHAGE XR [Concomitant]

REACTIONS (3)
  - DECREASED APPETITE [None]
  - INCREASED APPETITE [None]
  - WEIGHT DECREASED [None]
